FAERS Safety Report 9033828 (Version 1)
Quarter: 2013Q1

REPORT INFORMATION
  Report Type: Spontaneous
  Country: US (occurrence: US)
  Receive Date: 20130128
  Receipt Date: 20130128
  Transmission Date: 20140127
  Serious: Yes (Hospitalization, Other)
  Sender: FDA-Public Use
  Company Number: US-AMGEN-USASP2012071702

PATIENT
  Age: 56 Year
  Sex: Female

DRUGS (1)
  1. ENBREL [Suspect]
     Indication: PSORIATIC ARTHROPATHY
     Dosage: 50 MG, QWK
     Dates: start: 20030601, end: 201001

REACTIONS (7)
  - Lymphatic system neoplasm [Recovered/Resolved]
  - Condition aggravated [Not Recovered/Not Resolved]
  - Anaphylactic reaction [Recovered/Resolved]
  - Mesenteric arteriosclerosis [Recovered/Resolved]
  - Post gastric surgery syndrome [Not Recovered/Not Resolved]
  - Staphylococcal infection [Recovered/Resolved]
  - Urinary tract infection [Recovered/Resolved]
